FAERS Safety Report 6447909-5 (Version None)
Quarter: 2009Q4

REPORT INFORMATION
  Report Type: 
  Country: None (occurrence: None)
  Receive Date: 20091120
  Receipt Date: 20091110
  Transmission Date: 20100525
  Serious: No
  Sender: FDA-Public Use
  Company Number: US-JNJFOC-20091103704

PATIENT
  Sex: Male
  Weight: 137.89 kg

DRUGS (4)
  1. DURAGESIC-100 [Suspect]
     Indication: DEMYELINATION
     Route: 062
     Dates: start: 20030101
  2. DURAGESIC-100 [Suspect]
     Route: 062
     Dates: start: 20091001
  3. OXYCONTIN [Concomitant]
     Indication: PAIN
     Route: 048
  4. PERCOCET [Concomitant]
     Indication: PAIN
     Dosage: 10/325MG/TAB/10/325MG/AS NEEDED/ORAL
     Route: 048

REACTIONS (3)
  - APPLICATION SITE ERYTHEMA [None]
  - APPLICATION SITE ULCER [None]
  - WRONG TECHNIQUE IN DRUG USAGE PROCESS [None]
